FAERS Safety Report 8522449-8 (Version None)
Quarter: 2012Q3

REPORT INFORMATION
  Report Type: 
  Country: None (occurrence: None)
  Receive Date: 20120719
  Receipt Date: 20120716
  Transmission Date: 20120928
  Serious: Yes (Hospitalization, Other)
  Sender: FDA-Public Use
  Company Number: FR-BAXTER-2012BAX011645

PATIENT
  Age: 81 Year
  Sex: Female

DRUGS (1)
  1. DIANEAL LOW CALCIUM W/ DEXTROSE 3.5% [Suspect]

REACTIONS (2)
  - BRONCHOSPASM [None]
  - NONINFECTIOUS PERITONITIS [None]
